FAERS Safety Report 5202899-8 (Version None)
Quarter: 2006Q4

REPORT INFORMATION
  Report Type: 
  Country: None (occurrence: None)
  Receive Date: 20061016
  Receipt Date: 20050722
  Transmission Date: 20070319
  Serious: Yes (Other)
  Sender: FDA-Public Use
  Company Number: 421

PATIENT
  Age: 87 Year
  Sex: Female

DRUGS (4)
  1. AMIODARONE HCL [Suspect]
     Indication: VENTRICULAR ARRHYTHMIA
     Dosage: 200 MG QD PO
     Route: 048
  2. VALIUM [Concomitant]
  3. LASIX [Concomitant]
  4. VITAMINS [Concomitant]

REACTIONS (1)
  - CORNEAL DEPOSITS [None]
